FAERS Safety Report 6084437-3 (Version None)
Quarter: 2009Q1

REPORT INFORMATION
  Report Type: 
  Country: None (occurrence: None)
  Receive Date: 20090219
  Receipt Date: 20090216
  Transmission Date: 20090719
  Serious: Yes (Other)
  Sender: FDA-Public Use
  Company Number: B0560292A

PATIENT
  Age: 4 Year
  Sex: Male

DRUGS (2)
  1. AUGMENTIN '125' [Suspect]
     Dosage: 400MG TWICE PER DAY
     Route: 048
  2. SUPRAX [Concomitant]

REACTIONS (5)
  - BODY TEMPERATURE FLUCTUATION [None]
  - EPSTEIN-BARR VIRUS INFECTION [None]
  - INFECTIOUS MONONUCLEOSIS [None]
  - LEUKOCYTOSIS [None]
  - VOMITING [None]
